FAERS Safety Report 7996041-8 (Version None)
Quarter: 2011Q4

REPORT INFORMATION
  Report Type: 
  Country: None (occurrence: None)
  Receive Date: 20111220
  Receipt Date: 20111208
  Transmission Date: 20120403
  Serious: Yes (Other)
  Sender: FDA-Public Use
  Company Number: PHEH2008US04335

PATIENT
  Sex: Female

DRUGS (13)
  1. AMOXICILLIN [Concomitant]
     Dosage: 500 MG, UNK
  2. FOSAMAX [Suspect]
  3. FEMARA [Concomitant]
  4. AREDIA [Suspect]
  5. RADIATION THERAPY [Concomitant]
  6. ACETAMINOPHEN [Concomitant]
  7. CYTOXAN [Concomitant]
  8. ARIMIDEX [Concomitant]
  9. CEPHALEXIN [Concomitant]
  10. ADRIAMYCIN PFS [Concomitant]
  11. VITAMIN E [Concomitant]
  12. AROMASIN [Concomitant]
  13. TAMOXIFEN [Concomitant]

REACTIONS (18)
  - INJURY [None]
  - EXOSTOSIS [None]
  - OROPHARYNGEAL PAIN [None]
  - PAIN [None]
  - OSTEONECROSIS OF JAW [None]
  - ARTHRITIS [None]
  - ANHEDONIA [None]
  - DENTURE WEARER [None]
  - PLEURAL FIBROSIS [None]
  - DISABILITY [None]
  - ANXIETY [None]
  - HYPERCHOLESTEROLAEMIA [None]
  - BULLOUS LUNG DISEASE [None]
  - BREAST TENDERNESS [None]
  - VISION BLURRED [None]
  - KIDNEY INFECTION [None]
  - HYPOAESTHESIA [None]
  - EFFUSION [None]
